FAERS Safety Report 10234305 (Version 1)
Quarter: 2014Q2

REPORT INFORMATION
  Report Type: Spontaneous
  Country: US (occurrence: US)
  Receive Date: 20140612
  Receipt Date: 20140612
  Transmission Date: 20141212
  Serious: Yes (Other)
  Sender: FDA-Public Use
  Company Number: US-GILEAD-2014-0105104

PATIENT
  Age: 50 Year
  Sex: Male

DRUGS (3)
  1. SOVALDI [Suspect]
     Indication: HEPATITIS C
     Route: 065
  2. PEGINTERFERON ALFA [Suspect]
     Indication: HEPATITIS C
     Route: 065
  3. RIBAVIRIN [Suspect]
     Indication: HEPATITIS C
     Route: 065

REACTIONS (4)
  - Hepatic failure [Unknown]
  - Ascites [Recovering/Resolving]
  - Sepsis [Unknown]
  - Injection site reaction [Unknown]
